FAERS Safety Report 6964950-4 (Version None)
Quarter: 2010Q3

REPORT INFORMATION
  Report Type: 
  Country: None (occurrence: None)
  Receive Date: 20100903
  Receipt Date: 20100831
  Transmission Date: 20110219
  Serious: Yes (Death)
  Sender: FDA-Public Use
  Company Number: TR-ELI_LILLY_AND_COMPANY-TR201009000631

PATIENT

DRUGS (2)
  1. HUMULIN 70/30 [Suspect]
     Dosage: 40 U, EACH MORNING
     Route: 064
  2. HUMULIN 70/30 [Suspect]
     Dosage: 20 U, EACH EVENING
     Route: 064

REACTIONS (2)
  - DEATH NEONATAL [None]
  - DRUG EXPOSURE DURING PREGNANCY [None]
